FAERS Safety Report 19805329 (Version 1)
Quarter: 2021Q3

REPORT INFORMATION
  Report Type: Spontaneous
  Country: DK (occurrence: DK)
  Receive Date: 20210908
  Receipt Date: 20210908
  Transmission Date: 20211014
  Serious: Yes (Hospitalization)
  Sender: FDA-Public Use
  Company Number: DK-MYLANLABS-2021M1058517

PATIENT
  Age: 70 Year
  Sex: Male
  Weight: 76 kg

DRUGS (4)
  1. DEXAMETHASONE. [Suspect]
     Active Substance: DEXAMETHASONE
     Indication: PLASMA CELL MYELOMA
     Dosage: UNK (CYCLE 64)
     Route: 048
     Dates: start: 20151003, end: 20201008
  2. LENALIDOMIDE [Suspect]
     Active Substance: LENALIDOMIDE
     Indication: PLASMA CELL MYELOMA
     Dosage: 525 MILLIGRAM, Q21D
     Route: 048
     Dates: start: 20150203
  3. DICILLIN                           /00063302/ [Concomitant]
     Active Substance: DICLOXACILLIN SODIUM
     Indication: ERYSIPELAS
     Dosage: UNK
     Route: 065
     Dates: start: 20201014
  4. LENALIDOMIDE [Suspect]
     Active Substance: LENALIDOMIDE
     Dosage: 210 MILLIGRAM, Q21D
     Route: 048
     Dates: start: 20200918, end: 20201008

REACTIONS (2)
  - Nocardia sepsis [Not Recovered/Not Resolved]
  - Abscess [Not Recovered/Not Resolved]

NARRATIVE: CASE EVENT DATE: 20201021
